FAERS Safety Report 19534434 (Version 4)
Quarter: 2022Q3

REPORT INFORMATION
  Report Type: Report from Study
  Country: IN (occurrence: IN)
  Receive Date: 20210713
  Receipt Date: 20220919
  Transmission Date: 20221026
  Serious: Yes (Hospitalization, Other)
  Sender: FDA-Public Use
  Company Number: IN-NOVARTISPH-NVSC2021IN153554

PATIENT
  Age: 36 Year
  Sex: Male

DRUGS (4)
  1. SECUKINUMAB [Suspect]
     Active Substance: SECUKINUMAB
     Indication: Psoriasis
     Dosage: 300 MG, (LOADING DOSE)
     Route: 058
     Dates: start: 20200930
  2. SECUKINUMAB [Suspect]
     Active Substance: SECUKINUMAB
     Indication: Psoriatic arthropathy
     Dosage: 150 MG, Q2MO
     Route: 058
  3. SECUKINUMAB [Suspect]
     Active Substance: SECUKINUMAB
     Dosage: 150 MG, QMO
     Route: 058
     Dates: start: 20210508
  4. SECUKINUMAB [Suspect]
     Active Substance: SECUKINUMAB
     Dosage: UNK
     Route: 065
     Dates: start: 20220820

REACTIONS (8)
  - COVID-19 [Recovered/Resolved]
  - Pneumonia [Unknown]
  - Thrombosis [Unknown]
  - Musculoskeletal stiffness [Unknown]
  - Aspartate aminotransferase abnormal [Unknown]
  - Arthralgia [Unknown]
  - Vitamin D deficiency [Unknown]
  - Product use issue [Unknown]
